FAERS Safety Report 25878383 (Version 1)
Quarter: 2025Q4

REPORT INFORMATION
  Report Type: Spontaneous
  Country: US (occurrence: US)
  Receive Date: 20251003
  Receipt Date: 20251003
  Transmission Date: 20260119
  Serious: Yes (Other)
  Sender: ROCHE
  Company Number: US-ROCHE-10000399265

PATIENT

DRUGS (1)
  1. OCREVUS [Suspect]
     Active Substance: OCRELIZUMAB
     Indication: Primary progressive multiple sclerosis
     Route: 050

REACTIONS (1)
  - Primary progressive multiple sclerosis [Unknown]
